FAERS Safety Report 9118646 (Version 1)
Quarter: 2013Q1

REPORT INFORMATION
  Report Type: Spontaneous
  Country: US (occurrence: None)
  Receive Date: 20130221
  Receipt Date: 20130221
  Transmission Date: 20140127
  Serious: No
  Sender: FDA-Public Use
  Company Number: None

PATIENT
  Age: 85 Year
  Sex: Male

DRUGS (1)
  1. LEVOTHYROXINE [Suspect]
     Indication: THYROID DISORDER
     Dosage: 1 TABLET PER DAY IV
     Route: 042
     Dates: start: 20121110, end: 20121218

REACTIONS (1)
  - Myalgia [None]
